FAERS Safety Report 5947363-3 (Version None)
Quarter: 2008Q4

REPORT INFORMATION
  Report Type: 
  Country: None (occurrence: None)
  Receive Date: 20081106
  Receipt Date: 20081022
  Transmission Date: 20090506
  Serious: Yes (Death, Hospitalization)
  Sender: FDA-Public Use
  Company Number: 8038338

PATIENT
  Age: 30 Year
  Sex: Female

DRUGS (9)
  1. KEPPRA [Suspect]
     Indication: CONVULSION
     Dosage: 500 MG 2/D PO
     Route: 048
     Dates: start: 20081012, end: 20081020
  2. KEPPRA [Suspect]
     Indication: CONVULSION
     Dosage: 1000 MG 2/D PO
     Route: 048
     Dates: start: 20081020
  3. CIPROFLOXACIN /00697202/ [Concomitant]
  4. ACYCLOVIR [Concomitant]
  5. ALBUTEROL [Concomitant]
  6. FLONASE [Concomitant]
  7. LORTAB [Concomitant]
  8. FLEXERIL [Concomitant]
  9. CLARYTHROMYCIN [Concomitant]

REACTIONS (9)
  - APNOEIC ATTACK [None]
  - BACTERIAL INFECTION [None]
  - BRAIN OEDEMA [None]
  - CEREBROVASCULAR DISORDER [None]
  - DRUG INTERACTION [None]
  - ENCEPHALOPATHY [None]
  - MUSCLE RIGIDITY [None]
  - NONSPECIFIC REACTION [None]
  - VIRAL INFECTION [None]
